FAERS Safety Report 4738047-8 (Version None)
Quarter: 2005Q3

REPORT INFORMATION
  Report Type: 
  Country: None (occurrence: None)
  Receive Date: 20050809
  Receipt Date: 20050727
  Transmission Date: 20060218
  Serious: Yes (Other)
  Sender: FDA-Public Use
  Company Number: 2005AP04212

PATIENT
  Age: 70 Year
  Sex: Female

DRUGS (10)
  1. OMEPRAZOLE [Suspect]
     Indication: GASTROINTESTINAL HAEMORRHAGE
     Route: 048
  2. OMEPRAZOLE [Suspect]
     Route: 041
  3. THEOPHYLLINE [Interacting]
     Indication: ASTHMA
     Route: 048
  4. THEOPHYLLINE [Interacting]
     Route: 048
  5. FUROSEMIDE [Suspect]
     Route: 048
  6. SPIRONOLACTONE [Concomitant]
     Route: 048
  7. DIGOXIN [Concomitant]
     Indication: ATRIAL FIBRILLATION
     Dosage: GIVEN AFTER ANNULOPLASTY
     Route: 042
  8. AMIODARONE [Concomitant]
     Indication: ATRIAL FIBRILLATION
     Route: 048
  9. AMIODARONE [Concomitant]
     Dosage: GIVEN AFTER ANNULOPLASTY
     Route: 048
  10. DISOPYRAMIDE [Concomitant]
     Indication: ATRIAL FIBRILLATION
     Dosage: GIVEN AFTER ANNULOPLASTY
     Route: 048

REACTIONS (4)
  - ANOREXIA [None]
  - DRUG INTERACTION [None]
  - HEPATIC CYST [None]
  - VOMITING [None]
